FAERS Safety Report 17187838 (Version 2)
Quarter: 2025Q3

REPORT INFORMATION
  Report Type: Report from Study
  Country: EU (occurrence: EU)
  Receive Date: 20191221
  Receipt Date: 20250713
  Transmission Date: 20251021
  Serious: Yes (Hospitalization, Other)
  Sender: AUROBINDO
  Company Number: EU-002147023-NVSC2019NL056442

PATIENT
  Age: 80 Year

DRUGS (1)
  1. CLOPIDOGREL [Suspect]
     Active Substance: CLOPIDOGREL BISULFATE
     Indication: Cerebrovascular accident
     Route: 065

REACTIONS (2)
  - Cerebrovascular accident [Unknown]
  - Nervous system disorder [Unknown]
